FAERS Safety Report 10353142 (Version 2)
Quarter: 2014Q4

REPORT INFORMATION
  Report Type: Spontaneous
  Country: JP (occurrence: JP)
  Receive Date: 20140730
  Receipt Date: 20141008
  Transmission Date: 20150528
  Serious: Yes (Other)
  Sender: FDA-Public Use
  Company Number: PHHY2010JP095838

PATIENT
  Age: 79 Year
  Sex: Male

DRUGS (1)
  1. ZOMETA [Suspect]
     Active Substance: ZOLEDRONIC ACID
     Indication: METASTASES TO BONE
     Dosage: 4 MG, UNK (UNSPECIFIED INTERVALS)
     Route: 042
     Dates: start: 20090223, end: 20100630

REACTIONS (8)
  - Swelling [Unknown]
  - Pain [Unknown]
  - Fistula [Unknown]
  - Exposed bone in jaw [Unknown]
  - Erythema [Unknown]
  - Bone lesion [Unknown]
  - Osteonecrosis of jaw [Recovering/Resolving]
  - Gingivitis [Unknown]

NARRATIVE: CASE EVENT DATE: 20100630
